FAERS Safety Report 11510468 (Version 1)
Quarter: 2015Q3

REPORT INFORMATION
  Report Type: Spontaneous
  Country: US (occurrence: US)
  Receive Date: 20150915
  Receipt Date: 20150915
  Transmission Date: 20151125
  Serious: No
  Sender: FDA-Public Use
  Company Number: US-JNJFOC-20150604101

PATIENT
  Age: 91 Year
  Sex: Male
  Weight: 70.31 kg

DRUGS (2)
  1. TYLENOL EXTRA STRENGTH [Suspect]
     Active Substance: ACETAMINOPHEN
     Indication: PAIN
     Dosage: TABLETS OR CAPSULES 2-3 TIMES A DAY
     Route: 048
  2. HEART MEDICATIONS (NOS) [Concomitant]
     Indication: CARDIAC DISORDER
     Route: 065

REACTIONS (2)
  - Fluid retention [Recovering/Resolving]
  - Weight increased [Recovering/Resolving]
